FAERS Safety Report 24897344 (Version 2)
Quarter: 2025Q1

REPORT INFORMATION
  Report Type: Spontaneous
  Country: CA (occurrence: CA)
  Receive Date: 20250129
  Receipt Date: 20250218
  Transmission Date: 20250409
  Serious: Yes (Death, Hospitalization, Other)
  Sender: Unknown Manufacturer
  Company Number: CA-862174955-ML2025-00356

PATIENT
  Sex: Male

DRUGS (12)
  1. RANOLAZINE [Suspect]
     Active Substance: RANOLAZINE
     Indication: Angina pectoris
     Dosage: MAINTENANCE - 500 MG - PO (BID -1 TAB BY MOUTH TWICE DAILY
     Route: 048
     Dates: start: 20231228
  2. AG-RAMIPRII. 2.5 MG CAPSULE [Concomitant]
     Indication: Product used for unknown indication
     Dates: start: 20241224
  3. ASPIRIN 81 MG TABLET EC [Concomitant]
     Indication: Product used for unknown indication
     Dates: start: 20241203
  4. CIPRALEX 20 MG TABLET [Concomitant]
     Indication: Product used for unknown indication
     Dates: start: 20241203
  5. CLOBETASOL PROPIONATE 0.05% OINTMENT [Concomitant]
     Indication: Product used for unknown indication
     Dosage: 1 APPLICATION, BID, PRN
     Dates: start: 20221108, end: 20230507
  6. CRESTOR 40 MG TABLET [Concomitant]
     Indication: Product used for unknown indication
     Dosage: FREQUENCY-QHS: EVERY NIGHT AT BEDTIME
     Dates: start: 20241224
  7. EZETIMIBE [Concomitant]
     Active Substance: EZETIMIBE
     Indication: Product used for unknown indication
     Dates: start: 20241203
  8. MYLAN-NITRO 0.4 mg/hr patch [Concomitant]
     Indication: Product used for unknown indication
     Dosage: 0.4 MG/HR PATCH
     Dates: start: 20241224
  9. MYLAN-NITRO 0.8 mg/hr patch [Concomitant]
     Indication: Product used for unknown indication
     Dosage: 0.8 MG/HR PATCH
     Dates: start: 20241224
  10. AMLODIPINE BESYLATE [Concomitant]
     Active Substance: AMLODIPINE BESYLATE
     Indication: Product used for unknown indication
     Dates: start: 20241224
  11. CYANOCOBALAMIN [Concomitant]
     Active Substance: CYANOCOBALAMIN
     Indication: Product used for unknown indication
     Dates: start: 20241210
  12. METOPROLOL TARTRATE [Concomitant]
     Active Substance: METOPROLOL TARTRATE
     Indication: Product used for unknown indication

REACTIONS (1)
  - Acute myocardial infarction [Fatal]
